FAERS Safety Report 5502512-6 (Version None)
Quarter: 2007Q4

REPORT INFORMATION
  Report Type: 
  Country: None (occurrence: None)
  Receive Date: 20071030
  Receipt Date: 20071012
  Transmission Date: 20080405
  Serious: No
  Sender: FDA-Public Use
  Company Number: US-BOEHRINGER INGELHEIM PHARMACEUTICALS, INC.-2007-BP-21415BP

PATIENT
  Age: 79 Year
  Sex: Female

DRUGS (4)
  1. ATROVENT HFA [Suspect]
     Indication: ASTHMA
     Route: 055
     Dates: start: 20070401
  2. ATROVENT HFA [Suspect]
     Indication: OBSTRUCTIVE AIRWAYS DISORDER
  3. AZMACORT [Concomitant]
     Indication: ASTHMA
  4. ATENOLOL [Concomitant]
     Indication: ATRIAL FIBRILLATION

REACTIONS (2)
  - CONTUSION [None]
  - GLOSSODYNIA [None]
